FAERS Safety Report 4619552-1 (Version None)
Quarter: 2005Q2

REPORT INFORMATION
  Report Type: 
  Country: None (occurrence: None)
  Receive Date: 20050321
  Receipt Date: 20040728
  Transmission Date: 20051028
  Serious: Yes (Other)
  Sender: FDA-Public Use
  Company Number: 2004-07-1763

PATIENT
  Sex: Female

DRUGS (4)
  1. PEG-INTRON [Suspect]
     Indication: HEPATITIS C
  2. REBETOL [Suspect]
     Indication: HEPATITIS C
  3. TYLENOL (CAPLET) [Suspect]
  4. ASPIRIN [Suspect]

REACTIONS (4)
  - DEPRESSION [None]
  - INTENTIONAL MISUSE [None]
  - MIGRAINE [None]
  - VISION BLURRED [None]
